FAERS Safety Report 23416371 (Version 1)
Quarter: 2024Q1

REPORT INFORMATION
  Report Type: Other
  Country: JP (occurrence: JP)
  Receive Date: 20240118
  Receipt Date: 20240118
  Transmission Date: 20240410
  Serious: Yes (Other)
  Sender: FDA-Public Use
  Company Number: JP-CHUGAI-2024000575

PATIENT
  Age: 4 Decade
  Sex: Female

DRUGS (3)
  1. ACTEMRA [Suspect]
     Active Substance: TOCILIZUMAB
     Indication: Rheumatoid arthritis
     Dosage: UNK
     Route: 065
  2. METHOTREXATE [Concomitant]
     Active Substance: METHOTREXATE
     Dosage: UNK
  3. UPADACITINIB [Concomitant]
     Active Substance: UPADACITINIB

REACTIONS (4)
  - Tracheo-oesophageal fistula [Unknown]
  - Oesophageal ulcer [Unknown]
  - Intestinal ulcer [Unknown]
  - Tuberculosis gastrointestinal [Unknown]
